FAERS Safety Report 19828070 (Version 1)
Quarter: 2021Q3

REPORT INFORMATION
  Report Type: Report from Study
  Country: IN (occurrence: IN)
  Receive Date: 20210914
  Receipt Date: 20210914
  Transmission Date: 20211014
  Serious: Yes (Death)
  Sender: FDA-Public Use
  Company Number: IN-PFIZER INC-2021881254

PATIENT

DRUGS (6)
  1. TEMOZOLOMIDE. [Suspect]
     Active Substance: TEMOZOLOMIDE
     Indication: EWING^S SARCOMA RECURRENT
     Dosage: UNK, CYCLIC
  2. VINCRISTINE [Suspect]
     Active Substance: VINCRISTINE
     Indication: EWING^S SARCOMA RECURRENT
     Dosage: UNK UNK, CYCLIC
  3. CEFPODOXIME [Concomitant]
     Active Substance: CEFPODOXIME
     Indication: PROPHYLAXIS AGAINST DIARRHOEA
     Dosage: 10 MG/KG, DAILY (IN TWO DIVIDED DOSES, STARTING 1 DAY PRIOR AND CONTINUED TILL 3 DAYS)
  4. IRINOTECAN HCL [Suspect]
     Active Substance: IRINOTECAN HYDROCHLORIDE
     Indication: EWING^S SARCOMA RECURRENT
     Dosage: UNK UNK, CYCLIC
  5. CYCLOPHOSPHAMIDE. [Suspect]
     Active Substance: CYCLOPHOSPHAMIDE
     Indication: EWING^S SARCOMA RECURRENT
     Dosage: UNK, CYCLIC
  6. TOPOTECAN [Suspect]
     Active Substance: TOPOTECAN HYDROCHLORIDE
     Indication: EWING^S SARCOMA RECURRENT
     Dosage: UNK, CYCLIC

REACTIONS (2)
  - Bacterial sepsis [Fatal]
  - Febrile neutropenia [Fatal]
